FAERS Safety Report 7360649-3 (Version None)
Quarter: 2011Q1

REPORT INFORMATION
  Report Type: 
  Country: None (occurrence: None)
  Receive Date: 20110318
  Receipt Date: 20110216
  Transmission Date: 20110831
  Serious: Yes (Hospitalization, Other)
  Sender: FDA-Public Use
  Company Number: US-BAYER-201027957NA

PATIENT
  Sex: Female
  Weight: 81.633 kg

DRUGS (11)
  1. YAZ [Suspect]
     Indication: ACNE
     Dosage: UNK UNK, UNK
     Route: 048
     Dates: start: 20090512, end: 20090529
  2. PERCOCET [Concomitant]
  3. ALLEGRA [Concomitant]
     Dosage: DAILY DOSE 180 MG
  4. PHENERGAN [Concomitant]
     Indication: ABDOMINAL PAIN
     Dosage: UNK
  5. BENTYL [Concomitant]
     Indication: ABDOMINAL PAIN
     Dosage: UNK
  6. DILAUDID [Concomitant]
     Indication: PAIN
     Dosage: UNK
  7. YAZ [Suspect]
     Indication: CONTRACEPTION
  8. FIORICET [Concomitant]
     Indication: MIGRAINE
  9. NEXIUM [Concomitant]
     Indication: GASTROOESOPHAGEAL REFLUX DISEASE
     Dosage: DAILY DOSE 40 MG
  10. YAZ [Suspect]
     Indication: MENSTRUAL CYCLE MANAGEMENT
  11. FLEXERIL [Concomitant]
     Dosage: DAILY DOSE 30 MG

REACTIONS (4)
  - CHOLELITHIASIS [None]
  - CHOLECYSTITIS CHRONIC [None]
  - PULMONARY EMBOLISM [None]
  - DEEP VEIN THROMBOSIS [None]
